FAERS Safety Report 6342234-5 (Version None)
Quarter: 2009Q3

REPORT INFORMATION
  Report Type: 
  Country: None (occurrence: None)
  Receive Date: 20090903
  Receipt Date: 20090903
  Transmission Date: 20100115
  Serious: Yes (Hospitalization, Other)
  Sender: FDA-Public Use
  Company Number: None

PATIENT
  Age: 11 Year
  Sex: Female
  Weight: 18.1439 kg

DRUGS (1)
  1. AMPHETAMINE AND DEXTROAMPHETAMINE SALTS [Suspect]
     Indication: ATTENTION DEFICIT/HYPERACTIVITY DISORDER
     Dosage: 1 TABLET TWICE PER DAY PO
     Route: 048
     Dates: start: 20090618, end: 20090828

REACTIONS (9)
  - ABDOMINAL PAIN [None]
  - CRYING [None]
  - DEHYDRATION [None]
  - DIARRHOEA [None]
  - EATING DISORDER [None]
  - FAECAL INCONTINENCE [None]
  - FEELING ABNORMAL [None]
  - FLUID INTAKE REDUCED [None]
  - LETHARGY [None]
